FAERS Safety Report 20744128 (Version 1)
Quarter: 2022Q2

REPORT INFORMATION
  Report Type: Other
  Country: DE (occurrence: None)
  Receive Date: 20220425
  Receipt Date: 20220425
  Transmission Date: 20220720
  Serious: Yes (Other)
  Sender: FDA-Public Use
  Company Number: DE-ROCHE-2879685

PATIENT
  Sex: Male

DRUGS (5)
  1. MABTHERA [Suspect]
     Active Substance: RITUXIMAB
     Indication: Neuromyelitis optica spectrum disorder
     Route: 042
     Dates: start: 20170215
  2. MABTHERA [Suspect]
     Active Substance: RITUXIMAB
     Indication: Rheumatoid arthritis
     Route: 042
     Dates: start: 20210324
  3. METHOTREXATE SODIUM [Concomitant]
     Active Substance: METHOTREXATE SODIUM
  4. GABAPENTIN [Concomitant]
     Active Substance: GABAPENTIN
  5. CHOLECALCIFEROL [Concomitant]
     Active Substance: CHOLECALCIFEROL

REACTIONS (3)
  - Off label use [Unknown]
  - Neuromyelitis optica spectrum disorder [Unknown]
  - COVID-19 [Unknown]

NARRATIVE: CASE EVENT DATE: 20220101
